FAERS Safety Report 6226156-6 (Version None)
Quarter: 2009Q2

REPORT INFORMATION
  Report Type: 
  Country: None (occurrence: None)
  Receive Date: 20090612
  Receipt Date: 20090508
  Transmission Date: 20091009
  Serious: No
  Sender: FDA-Public Use
  Company Number: US-ABBOTT-09P-163-0572469-00

PATIENT
  Sex: Male

DRUGS (3)
  1. HUMIRA [Suspect]
     Indication: CROHN'S DISEASE
     Dosage: DAY 1
     Dates: start: 20090317, end: 20090317
  2. HUMIRA [Suspect]
     Dosage: 2 HUMIRA PEN INJECTIONS
  3. HUMIRA [Suspect]

REACTIONS (1)
  - WHITE BLOOD CELL COUNT DECREASED [None]
